FAERS Safety Report 7039331-8 (Version None)
Quarter: 2010Q4

REPORT INFORMATION
  Report Type: 
  Country: None (occurrence: None)
  Receive Date: 20101012
  Receipt Date: 20101001
  Transmission Date: 20110411
  Serious: Yes (Other)
  Sender: FDA-Public Use
  Company Number: JP-BAXTER-2010BH024152

PATIENT
  Age: 45 Year
  Sex: Male

DRUGS (8)
  1. CYCLOPHOSPHAMIDE [Suspect]
     Indication: PREMEDICATION
     Route: 065
  2. CYCLOPHOSPHAMIDE [Suspect]
     Indication: BONE MARROW TRANSPLANT
     Route: 065
  3. RADIOTHERAPY [Suspect]
     Indication: PREMEDICATION
     Route: 065
  4. RADIOTHERAPY [Suspect]
     Indication: BONE MARROW TRANSPLANT
     Route: 065
  5. FK506 [Suspect]
     Indication: PROPHYLAXIS
     Route: 065
  6. FK506 [Suspect]
     Indication: BONE MARROW TRANSPLANT
     Route: 065
  7. METHOTREXATE SODIUM [Suspect]
     Indication: PROPHYLAXIS
     Route: 065
  8. METHOTREXATE SODIUM [Suspect]
     Indication: BONE MARROW TRANSPLANT
     Route: 065

REACTIONS (1)
  - SPINAL CORD DISORDER [None]
